FAERS Safety Report 6267520-9 (Version None)
Quarter: 2009Q3

REPORT INFORMATION
  Report Type: 
  Country: None (occurrence: None)
  Receive Date: 20090714
  Receipt Date: 20090708
  Transmission Date: 20100115
  Serious: No
  Sender: FDA-Public Use
  Company Number: US-JNJFOC-20090703403

PATIENT
  Sex: Female
  Weight: 77.11 kg

DRUGS (6)
  1. DURAGESIC-100 [Suspect]
     Route: 062
  2. DURAGESIC-100 [Suspect]
     Indication: FIBROMYALGIA
     Route: 062
  3. FENTANYL TRANSDERMAL SYSTEM [Suspect]
     Indication: FIBROMYALGIA
     Route: 062
  4. LORCET-HD [Concomitant]
     Indication: BREAKTHROUGH PAIN
     Dosage: DOSE: 10/650 MG AS NEEDED
     Route: 048
  5. ATIVAN [Concomitant]
     Dosage: DOSE: 0.5MG IN MORNING.
     Route: 048
  6. ATIVAN [Concomitant]
     Indication: SLEEP DISORDER
     Dosage: DOSE: 2MG AT NIGHT
     Route: 048

REACTIONS (7)
  - BLOOD PRESSURE INCREASED [None]
  - DRUG DELIVERY SYSTEM MALFUNCTION [None]
  - DRUG DOSE OMISSION [None]
  - FEELING ABNORMAL [None]
  - FEELING DRUNK [None]
  - INAPPROPRIATE SCHEDULE OF DRUG ADMINISTRATION [None]
  - TREATMENT NONCOMPLIANCE [None]
